FAERS Safety Report 18699587 (Version 6)
Quarter: 2021Q2

REPORT INFORMATION
  Report Type: Report from Study
  Country: None (occurrence: US)
  Receive Date: 20210105
  Receipt Date: 20210625
  Transmission Date: 20210717
  Serious: Yes (Hospitalization, Other)
  Sender: FDA-Public Use
  Company Number: US-ABBVIE-20K-163-3661751-00

PATIENT
  Age: 64 Year
  Sex: Female
  Weight: 61.74 kg

DRUGS (3)
  1. HUMIRA [Suspect]
     Active Substance: ADALIMUMAB
     Indication: RHEUMATOID ARTHRITIS
     Dosage: CF
     Route: 058
     Dates: start: 2013, end: 2020
  2. HUMIRA [Suspect]
     Active Substance: ADALIMUMAB
     Route: 058
  3. HUMIRA [Suspect]
     Active Substance: ADALIMUMAB
     Indication: CROHN^S DISEASE
     Dosage: CITRATE FREE
     Route: 058
     Dates: start: 20201120

REACTIONS (24)
  - Dehydration [Recovered/Resolved]
  - Influenza [Recovered/Resolved]
  - Clostridium difficile infection [Unknown]
  - Condition aggravated [Recovering/Resolving]
  - Large intestinal stenosis [Recovered/Resolved]
  - Burning sensation [Unknown]
  - Headache [Not Recovered/Not Resolved]
  - Oral herpes [Recovered/Resolved]
  - Loss of consciousness [Recovered/Resolved]
  - Hiccups [Unknown]
  - Gastrointestinal pain [Unknown]
  - Diarrhoea [Recovering/Resolving]
  - Tenderness [Not Recovered/Not Resolved]
  - Pain [Recovered/Resolved]
  - Feeding disorder [Recovering/Resolving]
  - Crohn^s disease [Recovering/Resolving]
  - Platelet count abnormal [Recovered/Resolved]
  - Anal incontinence [Recovering/Resolving]
  - Injection site pain [Unknown]
  - Ileocaecal resection [Recovered/Resolved]
  - Vitamin D decreased [Recovered/Resolved]
  - Epidermolysis bullosa [Unknown]
  - Stress [Not Recovered/Not Resolved]
  - Anxiety [Recovering/Resolving]

NARRATIVE: CASE EVENT DATE: 201912
